FAERS Safety Report 7217245-8 (Version None)
Quarter: 2011Q1

REPORT INFORMATION
  Report Type: 
  Country: None (occurrence: None)
  Receive Date: 20110110
  Receipt Date: 20110102
  Transmission Date: 20110831
  Serious: Yes (Other)
  Sender: FDA-Public Use
  Company Number: US-JNJCH-2011000092

PATIENT
  Sex: Female
  Weight: 65.8 kg

DRUGS (1)
  1. ZYRTEC [Suspect]
     Indication: HYPERSENSITIVITY
     Dosage: TEXT:10MG
     Route: 048
     Dates: start: 20101226, end: 20101229

REACTIONS (4)
  - TOOTH FRACTURE [None]
  - PAIN [None]
  - CONTUSION [None]
  - SYNCOPE [None]
